FAERS Safety Report 17538398 (Version 1)
Quarter: 2020Q1

REPORT INFORMATION
  Report Type: Spontaneous
  Country: CN (occurrence: CN)
  Receive Date: 20200313
  Receipt Date: 20200313
  Transmission Date: 20200409
  Serious: Yes (Hospitalization, Other)
  Sender: FDA-Public Use
  Company Number: CN-ASTRAZENECA-2020SE35944

PATIENT
  Age: 19312 Day
  Sex: Male
  Weight: 59 kg

DRUGS (1)
  1. GEFITINIB. [Suspect]
     Active Substance: GEFITINIB
     Indication: CHEMOTHERAPY
     Route: 048
     Dates: start: 20200124, end: 20200229

REACTIONS (5)
  - Hepatic cyst [Unknown]
  - Pneumonitis [Unknown]
  - Rash [Unknown]
  - Drug-induced liver injury [Recovering/Resolving]
  - Hepatic failure [Unknown]

NARRATIVE: CASE EVENT DATE: 20200226
